FAERS Safety Report 4420418-0 (Version None)
Quarter: 2004Q3

REPORT INFORMATION
  Report Type: 
  Country: None (occurrence: None)
  Receive Date: 20040809
  Receipt Date: 20040225
  Transmission Date: 20050211
  Serious: No
  Sender: FDA-Public Use
  Company Number: US-GLAXOSMITHKLINE-A0499806A

PATIENT
  Age: 53 Year
  Sex: Female

DRUGS (4)
  1. PAXIL [Suspect]
     Indication: DEPRESSION
     Dosage: 25MG PER DAY
     Route: 048
     Dates: start: 20031001, end: 20040201
  2. WELLBUTRIN XL [Suspect]
     Indication: DRUG USE FOR UNKNOWN INDICATION
     Dosage: 300MG PER DAY
     Route: 048
     Dates: start: 20040220
  3. XANAX [Concomitant]
  4. HERBAL SUPPLEMENT [Concomitant]

REACTIONS (3)
  - ENERGY INCREASED [None]
  - INSOMNIA [None]
  - LOSS OF LIBIDO [None]
